FAERS Safety Report 16056591 (Version 2)
Quarter: 2019Q2

REPORT INFORMATION
  Report Type: Spontaneous
  Country: US (occurrence: US)
  Receive Date: 20190311
  Receipt Date: 20190402
  Transmission Date: 20190711
  Serious: Yes (Other)
  Sender: FDA-Public Use
  Company Number: US-PFIZER INC-2019101750

PATIENT
  Age: 60 Year

DRUGS (1)
  1. LYRICA [Suspect]
     Active Substance: PREGABALIN
     Indication: ESSENTIAL HYPERTENSION
     Dosage: 100 MG, 2X/DAY
     Route: 048

REACTIONS (3)
  - Glaucoma [Unknown]
  - Product use in unapproved indication [Unknown]
  - Blindness [Unknown]
